FAERS Safety Report 10657906 (Version 2)
Quarter: 2014Q4

REPORT INFORMATION
  Report Type: Spontaneous
  Country: SA (occurrence: SA)
  Receive Date: 20141217
  Receipt Date: 20141217
  Transmission Date: 20150529
  Serious: Yes (Hospitalization, Other)
  Sender: FDA-Public Use
  Company Number: SA-PFIZER INC-2014342226

PATIENT
  Age: 36 Year
  Sex: Female

DRUGS (4)
  1. RANITIDINE [Interacting]
     Active Substance: RANITIDINE\RANITIDINE HYDROCHLORIDE
     Indication: ABDOMINAL WALL HAEMATOMA
     Dosage: 150 MG, 2X/DAY
     Route: 048
  2. AMIODARONE [Interacting]
     Active Substance: AMIODARONE
     Indication: ARRHYTHMIA
     Dosage: UNK
  3. METRONIDAZOLE. [Suspect]
     Active Substance: METRONIDAZOLE
     Indication: ABDOMINAL WALL HAEMATOMA
     Dosage: UNK
  4. CISAPRIDE [Interacting]
     Active Substance: CISAPRIDE
     Indication: ABDOMINAL WALL HAEMATOMA
     Dosage: 10 MG, 3X/DAY
     Dates: end: 19981207

REACTIONS (3)
  - Electrocardiogram QT prolonged [Recovered/Resolved]
  - Drug interaction [Recovered/Resolved]
  - Torsade de pointes [Recovered/Resolved]
